FAERS Safety Report 5417443-X (Version None)
Quarter: 2007Q3

REPORT INFORMATION
  Report Type: 
  Country: None (occurrence: None)
  Receive Date: 20070816
  Receipt Date: 20070807
  Transmission Date: 20080115
  Serious: Yes (Hospitalization)
  Sender: FDA-Public Use
  Company Number: US-ABBOTT-07P-163-0377238-00

PATIENT
  Age: 22 Year
  Sex: Female
  Weight: 46.308 kg

DRUGS (2)
  1. HUMIRA [Suspect]
     Indication: RHEUMATOID ARTHRITIS
     Route: 058
     Dates: start: 20060101, end: 20070501
  2. HUMIRA [Suspect]
     Route: 058
     Dates: start: 20070501, end: 20070715

REACTIONS (2)
  - FEBRILE NEUTROPENIA [None]
  - HIP ARTHROPLASTY [None]
